FAERS Safety Report 4542965-3 (Version None)
Quarter: 2004Q4

REPORT INFORMATION
  Report Type: 
  Country: None (occurrence: None)
  Receive Date: 20041229
  Receipt Date: 20041214
  Transmission Date: 20050328
  Serious: Yes (Other)
  Sender: FDA-Public Use
  Company Number: 15798

PATIENT
  Age: 7 Year
  Sex: Male
  Weight: 4 kg

DRUGS (6)
  1. MILRINONE LACTATE [Suspect]
     Indication: POSTOPERATIVE CARE
     Dosage: 1 MCG/KG/MIN IV
     Route: 042
     Dates: start: 20041130
  2. ATIVAN [Concomitant]
  3. PHENOBARBITAL TAB [Concomitant]
  4. CEFAZOLIN [Concomitant]
  5. CALCIUM BOLUSES [Concomitant]
  6. IV FLUIDS WITH CALCIUM [Concomitant]

REACTIONS (3)
  - BLOOD PRESSURE FLUCTUATION [None]
  - HEART RATE INCREASED [None]
  - POST PROCEDURAL COMPLICATION [None]
